FAERS Safety Report 8898523 (Version 1)
Quarter: 2012Q4

REPORT INFORMATION
  Report Type: 
  Country: US (occurrence: US)
  Receive Date: 20121109
  Receipt Date: 20121109
  Transmission Date: 20130627
  Serious: No
  Sender: FDA-Public Use
  Company Number: US-B.I. PHARMACEUTICALS,INC./RIDGEFIELD-2012-BP-27383BP

PATIENT
  Age: 76 None
  Sex: Female
  Weight: 65 kg

DRUGS (1)
  1. MICARDIS HCT [Suspect]
     Indication: HYPERTENSION
     Route: 048
     Dates: start: 2008

REACTIONS (2)
  - Meniscus injury [Not Recovered/Not Resolved]
  - Hypothyroidism [Not Recovered/Not Resolved]
